FAERS Safety Report 24570933 (Version 3)
Quarter: 2025Q1

REPORT INFORMATION
  Report Type: Spontaneous
  Country: US (occurrence: US)
  Receive Date: 20241101
  Receipt Date: 20250114
  Transmission Date: 20250409
  Serious: Yes (Other)
  Sender: LUPIN
  Company Number: US-LUPIN PHARMACEUTICALS INC.-2024-10563

PATIENT

DRUGS (3)
  1. CEFDINIR [Suspect]
     Active Substance: CEFDINIR
     Indication: Asthma
     Route: 065
     Dates: start: 20240901
  2. DUPILUMAB [Suspect]
     Active Substance: DUPILUMAB
     Indication: Asthma
     Route: 058
     Dates: start: 20231116
  3. DUPILUMAB [Suspect]
     Active Substance: DUPILUMAB
     Route: 058
     Dates: start: 20231130, end: 20240910

REACTIONS (5)
  - Sleep disorder due to a general medical condition [Unknown]
  - Visual impairment [Unknown]
  - Asthma [Not Recovered/Not Resolved]
  - Dyspnoea [Unknown]
  - Product use in unapproved indication [Unknown]
